FAERS Safety Report 19599459 (Version 2)
Quarter: 2021Q3

REPORT INFORMATION
  Report Type: Other
  Country: US (occurrence: US)
  Receive Date: 20210722
  Receipt Date: 20210722
  Transmission Date: 20211014
  Serious: Yes (Other)
  Sender: FDA-Public Use
  Company Number: US-APOTEX-2021AP021504

PATIENT
  Age: 58 Year
  Sex: Male

DRUGS (2)
  1. RANITIDINE TABLETS [Suspect]
     Active Substance: RANITIDINE HYDROCHLORIDE
     Indication: ULCER
     Dosage: DAILY (TWICE A DAY)
     Route: 065
     Dates: start: 199709, end: 201011
  2. ZANTAC [Suspect]
     Active Substance: RANITIDINE HYDROCHLORIDE
     Indication: ULCER
     Dosage: DAILY (TWICE A DAY)
     Route: 065
     Dates: start: 198305, end: 199712

REACTIONS (1)
  - Renal cancer [Not Recovered/Not Resolved]

NARRATIVE: CASE EVENT DATE: 20111201
